FAERS Safety Report 5260829-7 (Version None)
Quarter: 2007Q1

REPORT INFORMATION
  Report Type: 
  Country: None (occurrence: None)
  Receive Date: 20070309
  Receipt Date: 20070228
  Transmission Date: 20070707
  Serious: Yes (Other)
  Sender: FDA-Public Use
  Company Number: US-JNJFOC-20061005401

PATIENT
  Sex: Female
  Weight: 65.16 kg

DRUGS (3)
  1. ORTHO EVRA [Suspect]
     Indication: DRUG USE FOR UNKNOWN INDICATION
     Route: 062
  2. NEXIUM [Concomitant]
  3. ZOLOFT [Concomitant]

REACTIONS (1)
  - RETINAL VASCULAR OCCLUSION [None]
